FAERS Safety Report 8166373-1 (Version None)
Quarter: 2012Q1

REPORT INFORMATION
  Report Type: 
  Country: None (occurrence: None)
  Receive Date: 20120227
  Receipt Date: 20110711
  Transmission Date: 20120608
  Serious: Yes (Other)
  Sender: FDA-Public Use
  Company Number: US-MYLANLABS-2011S1013279

PATIENT
  Age: 13 Year
  Sex: Male
  Weight: 90.72 kg

DRUGS (1)
  1. AMNESTEEM [Suspect]
     Indication: ACNE
     Route: 048
     Dates: start: 20110101, end: 20110623

REACTIONS (1)
  - BLOOD TRIGLYCERIDES INCREASED [None]
